FAERS Safety Report 9930050 (Version 1)
Quarter: 2014Q1

REPORT INFORMATION
  Report Type: Spontaneous
  Country: US (occurrence: US)
  Receive Date: 20140227
  Receipt Date: 20140227
  Transmission Date: 20141002
  Serious: No
  Sender: FDA-Public Use
  Company Number: US-AMGEN-USASP2013076978

PATIENT
  Age: 52 Year
  Sex: Female
  Weight: 80.73 kg

DRUGS (20)
  1. ENBREL [Suspect]
     Indication: RHEUMATOID ARTHRITIS
     Dosage: 20 MG, QD
     Route: 065
     Dates: start: 2010, end: 201307
  2. PREDNISONE [Suspect]
     Indication: RHEUMATOID ARTHRITIS
     Dosage: 20 MG, UNK
     Route: 065
     Dates: start: 201307
  3. SYNTHROID [Suspect]
     Indication: HYPOTHYROIDISM
     Dosage: UNK UNK, QWK
     Route: 065
     Dates: start: 2005
  4. HUMIRA [Suspect]
     Indication: RHEUMATOID ARTHRITIS
     Dosage: 40 MG, UNK
     Route: 065
  5. XYZAL [Concomitant]
     Indication: ASTHMA
     Dosage: UNK
  6. GUAIFENESIN [Concomitant]
     Indication: SEASONAL ALLERGY
     Dosage: UNK
  7. OMNARIS [Concomitant]
     Indication: SEASONAL ALLERGY
     Dosage: UNK
  8. ADVAIR [Concomitant]
     Indication: ASTHMA
     Dosage: UNK
  9. ALBUTEROL                          /00139501/ [Concomitant]
     Indication: ASTHMA
     Dosage: UNK
  10. DIOVAN [Concomitant]
     Indication: BLOOD PRESSURE
     Dosage: UNK
  11. DEXILANT [Concomitant]
     Indication: GASTROOESOPHAGEAL REFLUX DISEASE
     Dosage: UNK
  12. METHOTREXATE [Concomitant]
     Indication: RHEUMATOID ARTHRITIS
     Dosage: UNK
  13. CENESTIN [Concomitant]
     Indication: BLOOD OESTROGEN
     Dosage: UNK
  14. PROVERA [Concomitant]
     Indication: BLOOD OESTROGEN
     Dosage: UNK
  15. MULTIVITAMIN                       /07504101/ [Concomitant]
     Indication: VITAMIN SUPPLEMENTATION
     Dosage: UNK
  16. MAGNESIUM [Concomitant]
     Indication: SUPPLEMENTATION THERAPY
     Dosage: UNK
  17. VITAMIN D                          /00107901/ [Concomitant]
     Indication: VITAMIN SUPPLEMENTATION
     Dosage: UNK
  18. CALCIUM [Concomitant]
     Indication: SUPPLEMENTATION THERAPY
     Dosage: UNK
  19. FOLIC ACID [Concomitant]
     Indication: VITAMIN SUPPLEMENTATION
     Dosage: UNK
  20. PLAQUENIL                          /00072602/ [Concomitant]
     Indication: RHEUMATOID ARTHRITIS
     Dosage: UNK

REACTIONS (9)
  - Joint swelling [Unknown]
  - Therapeutic response decreased [Unknown]
  - Weight increased [Unknown]
  - Glucose tolerance impaired [Unknown]
  - Onychoclasis [Unknown]
  - Dry skin [Unknown]
  - Blood thyroid stimulating hormone abnormal [Unknown]
  - Fatigue [Unknown]
  - Drug effect incomplete [Recovered/Resolved]
